FAERS Safety Report 13858351 (Version 1)
Quarter: 2017Q3

REPORT INFORMATION
  Report Type: Spontaneous
  Country: AU (occurrence: AU)
  Receive Date: 20170811
  Receipt Date: 20170811
  Transmission Date: 20171127
  Serious: Yes (Death)
  Sender: FDA-Public Use
  Company Number: AU-NAPPMUNDI-GBR-2017-0047528

PATIENT
  Age: 84 Year
  Sex: Male

DRUGS (14)
  1. FUROSEMIDE. [Concomitant]
     Active Substance: FUROSEMIDE
  2. CLINDAMYCIN. [Interacting]
     Active Substance: CLINDAMYCIN
     Indication: OSTEOMYELITIS
     Dosage: 450 MG, BID
     Route: 048
  3. PALEXIA [Interacting]
     Active Substance: TAPENTADOL HYDROCHLORIDE
     Indication: PRODUCT USED FOR UNKNOWN INDICATION
     Dosage: UNK
     Route: 065
  4. LYRICA [Concomitant]
     Active Substance: PREGABALIN
  5. ALLOPURINOL. [Concomitant]
     Active Substance: ALLOPURINOL
  6. PARACETAMOL [Concomitant]
     Active Substance: ACETAMINOPHEN
  7. MEZAVANT [Concomitant]
     Active Substance: MESALAMINE
  8. PREDNISOLONE. [Concomitant]
     Active Substance: PREDNISOLONE
  9. SLOW K [Concomitant]
     Active Substance: POTASSIUM CHLORIDE
  10. OXYCONTIN [Suspect]
     Active Substance: OXYCODONE HYDROCHLORIDE
     Indication: PRODUCT USED FOR UNKNOWN INDICATION
     Dosage: 40 MG, BID
     Route: 065
     Dates: start: 2014
  11. FUCIDIN                            /00065702/ [Interacting]
     Active Substance: FUSIDATE SODIUM
     Indication: OSTEOMYELITIS
     Dosage: 1 G, TID
     Route: 065
     Dates: start: 20170530, end: 20170530
  12. PANTOPRAZOLE [Concomitant]
     Active Substance: PANTOPRAZOLE
  13. ASPIRIN. [Concomitant]
     Active Substance: ASPIRIN
  14. RISEDRONATE SODIUM. [Concomitant]
     Active Substance: RISEDRONATE SODIUM

REACTIONS (1)
  - Drug interaction [Fatal]

NARRATIVE: CASE EVENT DATE: 20170608
